FAERS Safety Report 4634047-7 (Version None)
Quarter: 2005Q2

REPORT INFORMATION
  Report Type: 
  Country: None (occurrence: None)
  Receive Date: 20050413
  Receipt Date: 20050401
  Transmission Date: 20051028
  Serious: Yes (Hospitalization)
  Sender: FDA-Public Use
  Company Number: US-JNJFOC-20050106165

PATIENT
  Age: 62 Year
  Sex: Male

DRUGS (1)
  1. DURAGESIC-100 [Suspect]
     Indication: CANCER PAIN
     Route: 062
     Dates: start: 20050122

REACTIONS (4)
  - BLOOD TEST ABNORMAL [None]
  - INFECTION [None]
  - LABORATORY TEST ABNORMAL [None]
  - PYREXIA [None]
